FAERS Safety Report 9359415 (Version 2)
Quarter: 2013Q2

REPORT INFORMATION
  Report Type: Report from Study
  Country: JP (occurrence: JP)
  Receive Date: 20130620
  Receipt Date: 20130628
  Transmission Date: 20140414
  Serious: Yes (Life-Threatening, Hospitalization, Disabling, Other)
  Sender: FDA-Public Use
  Company Number: JP-PFIZER INC-2013181439

PATIENT
  Age: 83 Year
  Sex: Male

DRUGS (18)
  1. UNASYN-S [Suspect]
     Indication: PNEUMONIA
     Dosage: 3 G, 1X/DAY
     Route: 041
     Dates: start: 20130507
  2. UNASYN-S [Suspect]
     Dosage: 3 G, 3X/DAY
     Route: 041
     Dates: start: 20130508
  3. UNASYN-S [Suspect]
     Dosage: 3 G, 2X/DAY
     Route: 041
     Dates: start: 20130509, end: 20130509
  4. ZITHROMAC SR [Suspect]
     Dosage: 2 G, 1X/DAY
     Route: 048
     Dates: start: 20130505, end: 20130505
  5. ASPENON [Suspect]
     Indication: ATRIAL FIBRILLATION
     Dosage: 20 MG, 2X/DAY
     Route: 048
     Dates: start: 201004, end: 20130511
  6. ROCEPHIN [Suspect]
     Dosage: 2 G, 1X/DAY
     Route: 042
     Dates: start: 20130505, end: 20130507
  7. GASMOTIN [Concomitant]
     Route: 048
  8. MAINTATE [Concomitant]
     Indication: ATRIAL FIBRILLATION
     Dosage: 5.0 MG, 1X/DAY
     Route: 048
     Dates: start: 201111, end: 20130511
  9. BAKTAR [Concomitant]
     Dosage: UNK
     Route: 048
     Dates: start: 20130512
  10. CALONAL [Concomitant]
     Dosage: UNK
     Route: 048
     Dates: start: 20130507
  11. WARFARIN [Concomitant]
     Indication: ATRIAL FIBRILLATION
     Dosage: 2.75 MG, 1X/DAY
     Route: 048
     Dates: end: 20130611
  12. EURODIN [Concomitant]
     Indication: INSOMNIA
     Dosage: 1 MG, 1X/DAY
     Route: 048
     Dates: start: 200704, end: 20130511
  13. PURSENNID [Concomitant]
     Indication: CONSTIPATION
     Dosage: 12 MG, 1X/DAY
     Route: 048
     Dates: start: 2007, end: 20130511
  14. TAKEPRON [Concomitant]
     Route: 048
  15. POLYFUL [Concomitant]
     Route: 048
  16. CEREKINON [Concomitant]
     Route: 048
  17. MIYA BM [Concomitant]
     Route: 048
  18. ALLEGRA [Concomitant]
     Indication: PRURITUS
     Dosage: 60 MG, 3X/DAY
     Route: 048
     Dates: start: 201301, end: 20130511

REACTIONS (1)
  - Interstitial lung disease [Recovered/Resolved with Sequelae]
